FAERS Safety Report 7933388-5 (Version None)
Quarter: 2011Q4

REPORT INFORMATION
  Report Type: 
  Country: None (occurrence: None)
  Receive Date: 20111122
  Receipt Date: 20111122
  Transmission Date: 20120403
  Serious: No
  Sender: FDA-Public Use
  Company Number: None

PATIENT
  Age: 35 Year
  Sex: Male
  Weight: 88.45 kg

DRUGS (1)
  1. CIPROFLOXACIN [Suspect]
     Indication: CYSTITIS
     Dosage: 1
     Route: 048
     Dates: start: 20111004, end: 20111005

REACTIONS (3)
  - TENDON PAIN [None]
  - PLANTAR FASCIITIS [None]
  - TENDONITIS [None]
